FAERS Safety Report 25521362 (Version 2)
Quarter: 2025Q3

REPORT INFORMATION
  Report Type: Spontaneous
  Country: US (occurrence: US)
  Receive Date: 20250705
  Receipt Date: 20250705
  Transmission Date: 20251021
  Serious: No
  Sender: TRAVERE THERAPEUTICS
  Company Number: US-TRAVERE-2025TVT00922

PATIENT
  Age: 48 Year
  Sex: Male

DRUGS (1)
  1. FILSPARI [Suspect]
     Active Substance: SPARSENTAN
     Indication: IgA nephropathy
     Route: 048
     Dates: start: 20250528

REACTIONS (14)
  - Abdominal distension [Unknown]
  - Decreased appetite [Unknown]
  - Asthenia [Unknown]
  - Ocular hyperaemia [Unknown]
  - Eye irritation [Unknown]
  - Conjunctivitis [Unknown]
  - Dyspnoea [Unknown]
  - Abdominal discomfort [Unknown]
  - Joint swelling [Unknown]
  - Dizziness [None]
  - Facial pain [Unknown]
  - Fatigue [Unknown]
  - Depressed mood [Unknown]
  - Hypotension [None]
